FAERS Safety Report 12359142 (Version 1)
Quarter: 2016Q2

REPORT INFORMATION
  Report Type: Spontaneous
  Country: US (occurrence: None)
  Receive Date: 20160511
  Receipt Date: 20160511
  Transmission Date: 20160815
  Serious: Yes (Disabling)
  Sender: FDA-Public Use
  Company Number: None

PATIENT
  Age: 46 Year
  Sex: Male
  Weight: 106.14 kg

DRUGS (7)
  1. LEXAPRO [Concomitant]
     Active Substance: ESCITALOPRAM OXALATE
  2. VITAMIN D [Concomitant]
     Active Substance: CHOLECALCIFEROL
  3. MAGNESIUM [Concomitant]
     Active Substance: MAGNESIUM
  4. LOPRESSOR [Concomitant]
     Active Substance: METOPROLOL TARTRATE
  5. KLONOPIN [Concomitant]
     Active Substance: CLONAZEPAM
  6. PREVACID [Concomitant]
     Active Substance: LANSOPRAZOLE
  7. FLUTICASONE PROPIONATE, 50 MCG [Suspect]
     Active Substance: FLUTICASONE PROPIONATE
     Indication: MULTIPLE ALLERGIES
     Route: 045
     Dates: start: 20160504, end: 20160508

REACTIONS (3)
  - Similar reaction on previous exposure to drug [None]
  - Depression [None]
  - Insomnia [None]

NARRATIVE: CASE EVENT DATE: 20160508
